FAERS Safety Report 9159799 (Version 1)
Quarter: 2013Q1

REPORT INFORMATION
  Report Type: Spontaneous
  Country: FR (occurrence: None)
  Receive Date: 20130219
  Receipt Date: 20130219
  Transmission Date: 20140127
  Serious: No
  Sender: FDA-Public Use
  Company Number: DSM-2013-00212

PATIENT
  Age: 79 Year
  Sex: Female

DRUGS (5)
  1. ALTEIS [Suspect]
     Indication: HYPERTENSION
     Dosage: 40/12.5MG (1 IN 1 D), ORAL
     Route: 048
     Dates: end: 20121219
  2. LEXOMIL (BROMAZEPAM) (BROMAZEPAM) [Concomitant]
  3. PIASCLEDINE (PIAS) (PIAS) [Concomitant]
  4. FORLAX (MACROGOL) (MACROGOL) [Concomitant]
  5. DAFALGAN (PARACETAMOL) (PARACETAMOL) [Concomitant]

REACTIONS (10)
  - Gastroenteritis [None]
  - Hypotension [None]
  - Hyponatraemia [None]
  - Fall [None]
  - Balance disorder [None]
  - Gait disturbance [None]
  - Condition aggravated [None]
  - Ataxia [None]
  - Vestibular disorder [None]
  - Cerebrovascular accident [None]
